FAERS Safety Report 9571290 (Version 1)
Quarter: 2013Q3

REPORT INFORMATION
  Report Type: Spontaneous
  Country: US (occurrence: None)
  Receive Date: 20130927
  Receipt Date: 20130927
  Transmission Date: 20140515
  Serious: Yes (Other)
  Sender: FDA-Public Use
  Company Number: None

PATIENT
  Age: 39 Year
  Sex: Female

DRUGS (1)
  1. AVELOX [Suspect]

REACTIONS (13)
  - Pleurisy [None]
  - Burning sensation [None]
  - Pain [None]
  - Cholecystectomy [None]
  - Sensation of pressure [None]
  - Pharyngeal disorder [None]
  - Oral discomfort [None]
  - Hyperacusis [None]
  - Muscle twitching [None]
  - Tinnitus [None]
  - Amnesia [None]
  - Headache [None]
  - Feeling abnormal [None]
